FAERS Safety Report 19880156 (Version 1)
Quarter: 2021Q3

REPORT INFORMATION
  Report Type: Spontaneous
  Country: NG (occurrence: NG)
  Receive Date: 20210924
  Receipt Date: 20210924
  Transmission Date: 20211014
  Serious: Yes (Death)
  Sender: FDA-Public Use
  Company Number: NG-ROCHE-2920203

PATIENT
  Age: 65 Year
  Sex: Female
  Weight: 82.6 kg

DRUGS (1)
  1. AVASTIN [Suspect]
     Active Substance: BEVACIZUMAB
     Indication: ENDOMETRIAL CANCER
     Route: 042
     Dates: start: 20210715

REACTIONS (1)
  - Death [Fatal]

NARRATIVE: CASE EVENT DATE: 20210915
